FAERS Safety Report 6163580-4 (Version None)
Quarter: 2009Q2

REPORT INFORMATION
  Report Type: 
  Country: None (occurrence: None)
  Receive Date: 20090422
  Receipt Date: 20090411
  Transmission Date: 20091009
  Serious: Yes (Death)
  Sender: FDA-Public Use
  Company Number: IN-BAXTER-2009BH001534

PATIENT
  Age: 63 Year
  Sex: Male

DRUGS (6)
  1. DIANEAL [Suspect]
     Indication: RENAL FAILURE CHRONIC
     Route: 033
     Dates: start: 20081201, end: 20090120
  2. DIANEAL [Suspect]
     Route: 033
     Dates: start: 20081201, end: 20090120
  3. DIANEAL [Suspect]
     Route: 033
     Dates: start: 20081001, end: 20081201
  4. MIXTARD HUMAN 70/30 [Concomitant]
     Indication: DIABETES MELLITUS
     Dates: end: 20090120
  5. CLOPILET [Concomitant]
     Indication: DRUG USE FOR UNKNOWN INDICATION
     Dates: end: 20090120
  6. BECOSULES CAPSULE [Concomitant]
     Indication: DRUG USE FOR UNKNOWN INDICATION
     Dates: end: 20090120

REACTIONS (1)
  - CEREBROVASCULAR ACCIDENT [None]
